FAERS Safety Report 8400711-7 (Version None)
Quarter: 2012Q2

REPORT INFORMATION
  Report Type: 
  Country: None (occurrence: None)
  Receive Date: 20120531
  Receipt Date: 20110629
  Transmission Date: 20120825
  Serious: No
  Sender: FDA-Public Use
  Company Number: US-NOVEN-11US002711

PATIENT
  Sex: Female
  Weight: 21.315 kg

DRUGS (2)
  1. DAYTRANA [Suspect]
     Indication: ATTENTION DEFICIT/HYPERACTIVITY DISORDER
     Dosage: 15 MG, QD
     Route: 062
     Dates: start: 20110401
  2. DAYTRANA [Suspect]
     Dosage: 20 MG, QD
     Route: 062

REACTIONS (4)
  - WEIGHT DECREASED [None]
  - INCORRECT DRUG ADMINISTRATION DURATION [None]
  - APPLICATION SITE INFLAMMATION [None]
  - PRODUCT QUALITY ISSUE [None]
